FAERS Safety Report 6457102-8 (Version None)
Quarter: 2009Q4

REPORT INFORMATION
  Report Type: 
  Country: None (occurrence: None)
  Receive Date: 20091125
  Receipt Date: 20091116
  Transmission Date: 20100525
  Serious: Yes (Hospitalization)
  Sender: FDA-Public Use
  Company Number: B0597518B

PATIENT
  Sex: Female
  Weight: 83 kg

DRUGS (8)
  1. LAPATINIB [Suspect]
     Indication: BREAST CANCER
     Dosage: 1250MG PER DAY
     Route: 048
     Dates: start: 20090813
  2. EPIRUBICIN [Suspect]
     Indication: BREAST CANCER
     Dosage: 167MG CYCLIC
     Route: 042
     Dates: start: 20090813
  3. CYCLOPHOSPHAMIDE [Suspect]
     Indication: BREAST CANCER
     Dosage: 1116MG CYCLIC
     Route: 042
     Dates: start: 20090813
  4. DOCETAXEL [Suspect]
     Indication: BREAST CANCER
     Dosage: 186MG CYCLIC
     Route: 042
     Dates: start: 20091105
  5. BLOPRESS [Concomitant]
     Dosage: 32MG PER DAY
  6. LERCANIDIPINE [Concomitant]
     Dosage: 10MG PER DAY
  7. NEBILET [Concomitant]
     Dosage: 10MG PER DAY
  8. ASPIRIN [Concomitant]
     Dosage: 100MG PER DAY

REACTIONS (1)
  - GENERAL PHYSICAL HEALTH DETERIORATION [None]
